FAERS Safety Report 5179496-6 (Version None)
Quarter: 2006Q4

REPORT INFORMATION
  Report Type: 
  Country: None (occurrence: None)
  Receive Date: 20061219
  Receipt Date: 20061213
  Transmission Date: 20070319
  Serious: Yes (Hospitalization)
  Sender: FDA-Public Use
  Company Number: JP-BRISTOL-MYERS SQUIBB COMPANY-13613088

PATIENT
  Age: 83 Year
  Sex: Female

DRUGS (2)
  1. FUNGIZONE [Suspect]
     Indication: MENINGITIS CRYPTOCOCCAL
     Route: 042
  2. FLUCONAZOLE [Concomitant]
     Route: 042

REACTIONS (1)
  - HYDROCEPHALUS [None]
